FAERS Safety Report 5636187-2 (Version None)
Quarter: 2008Q1

REPORT INFORMATION
  Report Type: 
  Country: None (occurrence: None)
  Receive Date: 20080225
  Receipt Date: 20080125
  Transmission Date: 20080703
  Serious: No
  Sender: FDA-Public Use
  Company Number: US-BAYER-200812626NA

PATIENT
  Age: 36 Year
  Sex: Female

DRUGS (4)
  1. YAZ [Suspect]
     Indication: CONTRACEPTION
     Route: 048
     Dates: start: 20071001
  2. DARVOCET [Concomitant]
     Indication: HERNIA PAIN
  3. GLUCOPHAGE [Concomitant]
  4. MIRALAX [Concomitant]

REACTIONS (1)
  - AMENORRHOEA [None]
